FAERS Safety Report 5240302-2 (Version None)
Quarter: 2007Q1

REPORT INFORMATION
  Report Type: 
  Country: None (occurrence: None)
  Receive Date: 20061208
  Receipt Date: 20050426
  Transmission Date: 20070707
  Serious: Yes (Other)
  Sender: FDA-Public Use
  Company Number: 2004UW22912

PATIENT
  Age: 70 Year
  Sex: Female
  Weight: 65.317 kg

DRUGS (7)
  1. CRESTOR [Suspect]
     Indication: BLOOD CHOLESTEROL INCREASED
     Dosage: 10 MG PO
     Route: 048
  2. SANCTURA [Concomitant]
  3. SYNTHROID [Concomitant]
  4. FOSAMAX [Concomitant]
  5. DDAVP (NEEDS NO REFRIGERATION) [Concomitant]
  6. MULTI-VITAMINS [Concomitant]
  7. ENABLEX [Concomitant]

REACTIONS (1)
  - DRY MOUTH [None]
